FAERS Safety Report 14485541 (Version 1)
Quarter: 2018Q1

REPORT INFORMATION
  Report Type: Report from Study
  Country: US (occurrence: US)
  Receive Date: 20180205
  Receipt Date: 20180205
  Transmission Date: 20180509
  Serious: Yes (Other)
  Sender: FDA-Public Use
  Company Number: US-BAYER-2017-241050

PATIENT
  Age: 69 Year
  Sex: Female
  Weight: 77.1 kg

DRUGS (5)
  1. VENTAVIS [Suspect]
     Active Substance: ILOPROST
     Indication: PULMONARY HYPERTENSION
     Dosage: 5 MCG, 6-9 XDAILY, EVERY 3 HOURS WHILE AWAKE
     Route: 055
     Dates: start: 20171207
  2. ADEMPAS [Suspect]
     Active Substance: RIOCIGUAT
     Indication: PRODUCT USED FOR UNKNOWN INDICATION
     Dosage: UNK
     Route: 065
  3. VENTAVIS [Suspect]
     Active Substance: ILOPROST
     Indication: PULMONARY HYPERTENSION
     Dosage: 2.5 MCG, UNK
     Route: 055
  4. VENTAVIS [Suspect]
     Active Substance: ILOPROST
     Indication: PULMONARY HYPERTENSION
     Dosage: 2.5 MCG, 6-9 XDAILY
     Route: 055
     Dates: start: 20171207
  5. SILDENAFIL CITRATE. [Concomitant]
     Active Substance: SILDENAFIL CITRATE
     Dosage: UNK

REACTIONS (15)
  - Vasodilatation [Recovering/Resolving]
  - Chest pain [None]
  - Hepatic neoplasm [None]
  - Blood pressure decreased [None]
  - Ocular hyperaemia [None]
  - Pain in jaw [Recovered/Resolved]
  - Respiratory tract congestion [None]
  - Nausea [Recovering/Resolving]
  - Feeling abnormal [None]
  - Dizziness [None]
  - Secretion discharge [None]
  - Pain in extremity [None]
  - Headache [Recovering/Resolving]
  - Cough [None]
  - Chest discomfort [Recovered/Resolved]

NARRATIVE: CASE EVENT DATE: 20171207
